FAERS Safety Report 7988605-2 (Version None)
Quarter: 2011Q4

REPORT INFORMATION
  Report Type: 
  Country: None (occurrence: None)
  Receive Date: 20111218
  Receipt Date: 20060228
  Transmission Date: 20120403
  Serious: Yes (Death, Other)
  Sender: FDA-Public Use
  Company Number: PHHY2006MX009350

PATIENT
  Age: 61 Year
  Sex: Male

DRUGS (1)
  1. ZELMAC [Suspect]
     Indication: COLITIS
     Dosage: UNK

REACTIONS (2)
  - MYOCARDIAL INFARCTION [None]
  - DEATH [None]
